FAERS Safety Report 19353004 (Version 3)
Quarter: 2021Q3

REPORT INFORMATION
  Report Type: Spontaneous
  Country: US (occurrence: US)
  Receive Date: 20210531
  Receipt Date: 20210928
  Transmission Date: 20211014
  Serious: Yes (Other)
  Sender: FDA-Public Use
  Company Number: US-PFIZER INC-2021574861

PATIENT
  Age: 55 Year
  Sex: Female
  Weight: 64.85 kg

DRUGS (7)
  1. LETROZOLE. [Concomitant]
     Active Substance: LETROZOLE
  2. IBRANCE [Suspect]
     Active Substance: PALBOCICLIB
     Dosage: 75 MG (21 DAYS ON, 7 DAYS OFF)
     Route: 048
     Dates: start: 20210412
  3. OMEGA 3 + VITAMIN D [Concomitant]
  4. VITAMIN D3 [Concomitant]
     Active Substance: CHOLECALCIFEROL
  5. VITAMIN D [VITAMIN D NOS] [Concomitant]
     Active Substance: VITAMIN D NOS
  6. IBRANCE [Suspect]
     Active Substance: PALBOCICLIB
     Indication: BREAST CANCER FEMALE
     Dosage: 100 MG (21 DAYS ON, 7 DAYS OFF)
     Route: 048
     Dates: start: 20210412
  7. L?LEUCINE [Concomitant]

REACTIONS (6)
  - White blood cell count decreased [Unknown]
  - Choking [Recovering/Resolving]
  - Fatigue [Unknown]
  - Loss of consciousness [Unknown]
  - Alopecia [Unknown]
  - Cough [Recovering/Resolving]
